FAERS Safety Report 13576333 (Version 2)
Quarter: 2017Q3

REPORT INFORMATION
  Report Type: Spontaneous
  Country: US (occurrence: US)
  Receive Date: 20170524
  Receipt Date: 20170713
  Transmission Date: 20171127
  Serious: Yes (Death, Other)
  Sender: FDA-Public Use
  Company Number: US-ASTELLAS-2017US020179

PATIENT
  Age: 80 Year
  Sex: Male

DRUGS (1)
  1. XTANDI [Suspect]
     Active Substance: ENZALUTAMIDE
     Indication: NEOPLASM PROSTATE
     Route: 048
     Dates: start: 20170425, end: 20170630

REACTIONS (2)
  - Ulcer haemorrhage [Unknown]
  - Death [Fatal]

NARRATIVE: CASE EVENT DATE: 20170515
